FAERS Safety Report 25423290 (Version 3)
Quarter: 2025Q2

REPORT INFORMATION
  Report Type: Spontaneous
  Country: TW (occurrence: TW)
  Receive Date: 20250611
  Receipt Date: 20250627
  Transmission Date: 20250716
  Serious: Yes (Death, Other)
  Sender: ROCHE
  Company Number: TW-CHUGAI-2025017655

PATIENT
  Age: 68 Year
  Sex: Male
  Weight: 59 kg

DRUGS (25)
  1. ACTEMRA [Suspect]
     Active Substance: TOCILIZUMAB
     Indication: COVID-19
     Route: 042
     Dates: start: 20250508, end: 20250508
  2. REMDESIVIR [Suspect]
     Active Substance: REMDESIVIR
     Indication: COVID-19
     Dosage: 100 MILLIGRAM, QD
     Route: 042
     Dates: start: 20250507, end: 20250510
  3. REMDESIVIR [Suspect]
     Active Substance: REMDESIVIR
     Dosage: 200 MILLIGRAM
     Route: 042
     Dates: start: 20250506, end: 20250506
  4. AMPICILLIN SODIUM\SULBACTAM SODIUM [Suspect]
     Active Substance: AMPICILLIN SODIUM\SULBACTAM SODIUM
     Indication: Peripheral artery occlusion
     Dosage: 1500MG, Q12H
     Route: 042
     Dates: end: 20250519
  5. AMPICILLIN SODIUM\SULBACTAM SODIUM [Suspect]
     Active Substance: AMPICILLIN SODIUM\SULBACTAM SODIUM
     Indication: Bacterial infection
  6. VILDAGLIPTIN [Suspect]
     Active Substance: VILDAGLIPTIN
     Indication: Product used for unknown indication
     Route: 048
     Dates: start: 20250204
  7. VILDAGLIPTIN [Suspect]
     Active Substance: VILDAGLIPTIN
     Dosage: UNK
     Route: 048
     Dates: start: 20250505, end: 20250516
  8. DEXTROMETHORPHAN [Concomitant]
     Active Substance: DEXTROMETHORPHAN
     Route: 048
     Dates: start: 20250506, end: 20250515
  9. BETAMYCIN [BETAMETHASONE VALERATE;GENTAMICIN SULFATE] [Concomitant]
     Indication: Peripheral artery occlusion
     Route: 065
     Dates: end: 20250513
  10. BETAMYCIN [BETAMETHASONE VALERATE;GENTAMICIN SULFATE] [Concomitant]
     Indication: Sepsis
  11. ACETAMINOPHEN [Concomitant]
     Active Substance: ACETAMINOPHEN
     Indication: Pyrexia
     Route: 065
     Dates: start: 20250505
  12. LEVOCETIRIZINE [Concomitant]
     Active Substance: LEVOCETIRIZINE
     Route: 065
     Dates: start: 20250506
  13. MIDODRINE [Concomitant]
     Active Substance: MIDODRINE
     Indication: Shock
     Route: 065
     Dates: start: 20250507
  14. DEXAMETHASONE [Concomitant]
     Active Substance: DEXAMETHASONE
     Dosage: 6 MILLIGRAM, QD
     Route: 065
     Dates: start: 20250508, end: 20250514
  15. DESLORATADINE [Concomitant]
     Active Substance: DESLORATADINE
     Route: 065
     Dates: start: 20250505, end: 20250515
  16. CYPROHEPTADINE [Concomitant]
     Active Substance: CYPROHEPTADINE
     Indication: Sepsis
     Route: 065
     Dates: start: 20250508, end: 20250519
  17. ESOMEPRAZOLE [Concomitant]
     Active Substance: ESOMEPRAZOLE
     Route: 048
     Dates: start: 20250503, end: 20250519
  18. PITAVASTATIN [Concomitant]
     Active Substance: PITAVASTATIN
     Route: 048
     Dates: start: 20250503, end: 20250519
  19. RANOLAZINE [Concomitant]
     Active Substance: RANOLAZINE
     Route: 048
     Dates: start: 20250504, end: 20250519
  20. LYSOZYME HYDROCHLORIDE [Concomitant]
     Active Substance: LYSOZYME HYDROCHLORIDE
     Route: 048
     Dates: start: 20250506, end: 20250519
  21. NOREPINEPHRINE BITARTRATE [Concomitant]
     Active Substance: NOREPINEPHRINE BITARTRATE
     Route: 042
     Dates: start: 20250507, end: 20250510
  22. POTASSIUM CHLORIDE [Concomitant]
     Active Substance: POTASSIUM CHLORIDE
     Route: 048
     Dates: start: 20250507, end: 20250510
  23. ASPIRIN [Concomitant]
     Active Substance: ASPIRIN
     Route: 048
     Dates: start: 20250507, end: 20250521
  24. HEPARIN [Concomitant]
     Active Substance: HEPARIN SODIUM
     Route: 042
     Dates: start: 20250507, end: 20250515
  25. TICAGRELOR [Concomitant]
     Active Substance: TICAGRELOR
     Route: 048
     Dates: start: 20250508, end: 20250521

REACTIONS (8)
  - SJS-TEN overlap [Fatal]
  - Pemphigoid [Fatal]
  - Respiratory failure [Unknown]
  - Altered state of consciousness [Unknown]
  - Klebsiella sepsis [Unknown]
  - Septic shock [Unknown]
  - Supraventricular tachycardia [Unknown]
  - Bacterial infection [Unknown]

NARRATIVE: CASE EVENT DATE: 20250513
